FAERS Safety Report 9469849 (Version 3)
Quarter: 2013Q4

REPORT INFORMATION
  Report Type: Spontaneous
  Country: US (occurrence: US)
  Receive Date: 20130822
  Receipt Date: 20131129
  Transmission Date: 20140711
  Serious: Yes (Other)
  Sender: FDA-Public Use
  Company Number: US-JNJFOC-20130711215

PATIENT
  Age: 59 Year
  Sex: Male
  Weight: 72.58 kg

DRUGS (6)
  1. STELARA [Suspect]
     Indication: PSORIASIS
     Route: 058
     Dates: start: 20120810
  2. METFORMIN [Concomitant]
     Route: 065
  3. GLIPIZIDE [Concomitant]
     Route: 065
  4. GLIMEPIRIDE [Concomitant]
     Route: 065
  5. AVAPRO [Concomitant]
     Route: 065
  6. ONGLYZA [Concomitant]
     Route: 065

REACTIONS (1)
  - Latent tuberculosis [Not Recovered/Not Resolved]
